FAERS Safety Report 15386452 (Version 1)
Quarter: 2018Q3

REPORT INFORMATION
  Report Type: Spontaneous
  Country: US (occurrence: US)
  Receive Date: 20180914
  Receipt Date: 20180914
  Transmission Date: 20181010
  Serious: No
  Sender: FDA-Public Use
  Company Number: US-PERRIGO-17US030034

PATIENT
  Sex: Female

DRUGS (2)
  1. NYSTOP [Suspect]
     Active Substance: NYSTATIN
     Indication: BACTERIAL INFECTION
     Dosage: A SMALL AMOUNT, QD
     Route: 061
     Dates: start: 2017, end: 2017
  2. NYSTOP [Suspect]
     Active Substance: NYSTATIN
     Dosage: A SMALL AMOUNT, QD
     Route: 061
     Dates: start: 2017, end: 2017

REACTIONS (4)
  - Hypersensitivity [Recovered/Resolved]
  - Drug ineffective for unapproved indication [Unknown]
  - Application site rash [Recovered/Resolved]
  - Condition aggravated [Recovered/Resolved]

NARRATIVE: CASE EVENT DATE: 2017
